FAERS Safety Report 21736922 (Version 1)
Quarter: 2022Q4

REPORT INFORMATION
  Report Type: Spontaneous
  Country: US (occurrence: US)
  Receive Date: 20221216
  Receipt Date: 20221216
  Transmission Date: 20230113
  Serious: No
  Sender: FDA-Public Use
  Company Number: US-SA-SAC20221214000390

PATIENT
  Age: 62 Year
  Sex: Female

DRUGS (1)
  1. AUBAGIO [Suspect]
     Active Substance: TERIFLUNOMIDE
     Indication: Multiple sclerosis
     Dosage: 14 MG, QD
     Route: 048
     Dates: start: 20221019

REACTIONS (6)
  - Musculoskeletal stiffness [Unknown]
  - Muscle spasticity [Unknown]
  - Pain [Unknown]
  - Sensory disturbance [Unknown]
  - Movement disorder [Unknown]
  - Fall [Unknown]
